FAERS Safety Report 6940367-3 (Version None)
Quarter: 2010Q3

REPORT INFORMATION
  Report Type: 
  Country: None (occurrence: None)
  Receive Date: 20100825
  Receipt Date: 20100817
  Transmission Date: 20110219
  Serious: Yes (Other)
  Sender: FDA-Public Use
  Company Number: US-BAXTER-2010BH021702

PATIENT
  Age: 60 Year
  Sex: Female

DRUGS (18)
  1. GAMMAGARD LIQUID [Suspect]
     Indication: PRODUCT USED FOR UNKNOWN INDICATION
     Route: 042
     Dates: start: 20100810, end: 20100810
  2. GAMMAGARD LIQUID [Suspect]
     Route: 042
     Dates: start: 20100225
  3. TESSALON [Concomitant]
  4. ZANTAC [Concomitant]
  5. ANTI-DIABETICS [Concomitant]
  6. LOMOTIL [Concomitant]
  7. BERATHOMIL [Concomitant]
  8. NEURONTIN [Concomitant]
  9. ADVAIR DISKUS 100/50 [Concomitant]
  10. NEXIUM [Concomitant]
  11. ESTER-C [Concomitant]
  12. ZETIA [Concomitant]
  13. FISH OIL [Concomitant]
  14. PROMETHAZINE [Concomitant]
  15. ASPIRINE [Concomitant]
  16. FLAXSEED OIL [Concomitant]
  17. ACETAMINOPHEN [Concomitant]
     Indication: PREMEDICATION
     Dates: start: 20100810
  18. DIPHENHYDRAMINE [Concomitant]
     Indication: PREMEDICATION
     Dates: start: 20100810

REACTIONS (7)
  - BLOOD PRESSURE INCREASED [None]
  - BURNING SENSATION [None]
  - FEELING DRUNK [None]
  - HYPOAESTHESIA [None]
  - LIP SWELLING [None]
  - LOCAL SWELLING [None]
  - PAIN [None]
